FAERS Safety Report 8233041-7 (Version None)
Quarter: 2012Q1

REPORT INFORMATION
  Report Type: 
  Country: None (occurrence: None)
  Receive Date: 20120326
  Receipt Date: 20120313
  Transmission Date: 20120608
  Serious: No
  Sender: FDA-Public Use
  Company Number: US-BIOGENIDEC-2011BI042477

PATIENT
  Sex: Female

DRUGS (1)
  1. TYSABRI [Suspect]
     Indication: MULTIPLE SCLEROSIS
     Route: 042
     Dates: start: 20111004

REACTIONS (9)
  - DIZZINESS [None]
  - DEPRESSION [None]
  - AMNESIA [None]
  - VERTIGO [None]
  - WEIGHT DECREASED [None]
  - MEMORY IMPAIRMENT [None]
  - BACK PAIN [None]
  - INCREASED APPETITE [None]
  - BURNING SENSATION [None]
